FAERS Safety Report 6470540-2 (Version None)
Quarter: 2009Q4

REPORT INFORMATION
  Report Type: 
  Country: None (occurrence: None)
  Receive Date: 20091203
  Receipt Date: 20091120
  Transmission Date: 20100525
  Serious: Yes (Other)
  Sender: FDA-Public Use
  Company Number: US-PFIZER INC-2009298228

PATIENT
  Sex: Female
  Weight: 45.359 kg

DRUGS (5)
  1. XANAX [Suspect]
     Indication: ANXIETY
     Dosage: 2 MG, 4X/DAY
     Route: 048
  2. ZOLOFT [Suspect]
     Indication: ANXIETY
     Dates: end: 20090101
  3. TRAZODONE [Suspect]
     Indication: INSOMNIA
  4. INDOMETHACIN [Concomitant]
  5. ADVIL [Concomitant]

REACTIONS (21)
  - ANXIETY [None]
  - BACK INJURY [None]
  - CARTILAGE INJURY [None]
  - CONVULSION [None]
  - DRUG ADMINISTRATION ERROR [None]
  - DRUG INEFFECTIVE [None]
  - FALL [None]
  - FEELING ABNORMAL [None]
  - HEADACHE [None]
  - HYPERHIDROSIS [None]
  - HYPERTENSION [None]
  - INCORRECT DOSE ADMINISTERED [None]
  - INSOMNIA [None]
  - LACK OF SPONTANEOUS SPEECH [None]
  - MUSCLE SPASMS [None]
  - NAUSEA [None]
  - SEDATION [None]
  - SLUGGISHNESS [None]
  - SUICIDAL IDEATION [None]
  - THYROID DISORDER [None]
  - WEIGHT DECREASED [None]
